FAERS Safety Report 22524504 (Version 1)
Quarter: 2023Q2

REPORT INFORMATION
  Report Type: Spontaneous
  Country: MX (occurrence: MX)
  Receive Date: 20230606
  Receipt Date: 20230606
  Transmission Date: 20230722
  Serious: Yes (Other)
  Sender: FDA-Public Use
  Company Number: MX-ROCHE-3356166

PATIENT
  Age: 57 Year
  Sex: Female
  Weight: 55 kg

DRUGS (12)
  1. CAPECITABINE [Suspect]
     Active Substance: CAPECITABINE
     Indication: Breast cancer
     Route: 048
  2. TRASTUZUMAB [Suspect]
     Active Substance: TRASTUZUMAB
     Indication: Breast cancer
     Dosage: INTRAVENOUS DRIP
     Route: 042
     Dates: start: 202009, end: 20210809
  3. LAPATINIB [Concomitant]
     Active Substance: LAPATINIB
     Indication: Breast cancer
  4. DENOSUMAB [Concomitant]
     Active Substance: DENOSUMAB
     Indication: Breast cancer
  5. ACETAMINOPHEN\TRAMADOL HYDROCHLORIDE [Concomitant]
     Active Substance: ACETAMINOPHEN\TRAMADOL HYDROCHLORIDE
  6. PREGABALIN [Concomitant]
     Active Substance: PREGABALIN
  7. CINNARIZINE [Concomitant]
     Active Substance: CINNARIZINE
  8. SALINE [Concomitant]
     Active Substance: SODIUM CHLORIDE
     Dosage: 3 HOURS, UNIQUE DOSE
     Route: 042
  9. DEXAMETHASONE [Concomitant]
     Active Substance: DEXAMETHASONE
     Dosage: UNIQUE DOSE
     Route: 042
  10. PALONOSETRON [Concomitant]
     Active Substance: PALONOSETRON
     Dosage: 1 AMPOULE, UNIQUE DOSE
     Route: 042
  11. DIPHENHYDRAMINE [Concomitant]
     Active Substance: DIPHENHYDRAMINE
     Dosage: UNIQUE DOSE
     Route: 042
  12. FOSAPREPITANT [Concomitant]
     Active Substance: FOSAPREPITANT
     Dosage: UNIQUE DOSE
     Route: 042

REACTIONS (38)
  - Hypertension [Unknown]
  - Bone cancer [Unknown]
  - Hepatic neoplasm [Unknown]
  - Lateral medullary syndrome [Unknown]
  - Back pain [Unknown]
  - Hepatic neoplasm [Unknown]
  - Muscular weakness [Unknown]
  - Paraesthesia [Unknown]
  - Haematemesis [Unknown]
  - Asthenia [Unknown]
  - Metastasis [Unknown]
  - Metastases to bone [Unknown]
  - Compression fracture [Unknown]
  - Bone neoplasm [Unknown]
  - Cholecystitis chronic [Unknown]
  - Cholelithiasis [Unknown]
  - Hamartoma [Unknown]
  - Neoplasm [Unknown]
  - Gastric mucosa erythema [Unknown]
  - Duodenogastric reflux [Unknown]
  - Necrotic lymphadenopathy [Unknown]
  - Spinal stenosis [Unknown]
  - Myelopathy [Unknown]
  - Hepatic mass [Unknown]
  - Metastasis [Unknown]
  - Liver injury [Unknown]
  - Renal disorder [Unknown]
  - Adnexa uteri cyst [Unknown]
  - Hydrosalpinx [Unknown]
  - Fibrocystic breast disease [Unknown]
  - Fibroadenoma of breast [Unknown]
  - Fibroadenoma of breast [Unknown]
  - Lymphadenopathy [Unknown]
  - Adenocarcinoma metastatic [Unknown]
  - Desmoplastic fibroblastoma [Unknown]
  - Hepatic cyst [Unknown]
  - Hepatic steatosis [Unknown]
  - Liver injury [Unknown]

NARRATIVE: CASE EVENT DATE: 20220612
